FAERS Safety Report 7327086-9 (Version None)
Quarter: 2011Q1

REPORT INFORMATION
  Report Type: 
  Country: None (occurrence: None)
  Receive Date: 20110223
  Receipt Date: 20110211
  Transmission Date: 20110831
  Serious: No
  Sender: FDA-Public Use
  Company Number: 201102026

PATIENT
  Sex: Male

DRUGS (1)
  1. TESTIM [Suspect]

REACTIONS (3)
  - PERSONALITY CHANGE [None]
  - AGGRESSION [None]
  - IMPRISONMENT [None]
